FAERS Safety Report 9837555 (Version 1)
Quarter: 2013Q4

REPORT INFORMATION
  Report Type: Spontaneous
  Country: US (occurrence: None)
  Receive Date: 20131125
  Receipt Date: 20131125
  Transmission Date: 20140711
  Serious: Yes (Other)
  Sender: FDA-Public Use
  Company Number: ALL1-2013-02996

PATIENT
  Age: 51 Year
  Sex: Female
  Weight: 107.9 kg

DRUGS (8)
  1. CARBATROL [Suspect]
     Indication: CONVULSION
     Route: 048
     Dates: start: 201205, end: 2012
  2. PRILOSEC (OMEPRAZOLE) [Concomitant]
  3. FLEXERIL (CYCLOBENZAPRINE HYDROCHLORIDE) [Concomitant]
  4. PRENATAL VITAMINS (ASCORBIC ACID, CALCIUM PANTOTHENATE, CYANOCOBALAMIN,ERGOCALCIFEROL, NICOTINAMIDE, PYRIDOXINE HYDROCHLORIDE, RETINOL PALMITATE, RIBOFLAVIN, THIAMINE MONONITRATE) [Concomitant]
  5. ERGOCALCIFEROL [Concomitant]
  6. VITAMIN C (ASCORBIC ACID) [Concomitant]
  7. VITAMIN B6 (PYRIDOXINE HYDROCHLORIDE) [Concomitant]
  8. VITAMIN B12 (CYANOCOBALAMIN) [Concomitant]

REACTIONS (6)
  - Convulsion [None]
  - Gait disturbance [None]
  - Pain in extremity [None]
  - Muscle spasms [None]
  - Muscle disorder [None]
  - Oedema peripheral [None]
